FAERS Safety Report 7388518 (Version 6)
Quarter: 2013Q2

REPORT INFORMATION
  Report Type: Spontaneous
  Country: US (occurrence: US)
  Receive Date: 20100514
  Receipt Date: 20130510
  Transmission Date: 20140414
  Serious: Yes (Hospitalization, Other)
  Sender: FDA-Public Use
  Company Number: PHEH2010US03428

PATIENT
  Sex: Female

DRUGS (4)
  1. AREDIA [Suspect]
  2. FLONASE [Concomitant]
  3. SYNTHROID [Concomitant]
  4. PERIDEX [Concomitant]

REACTIONS (47)
  - Herpes zoster [Unknown]
  - Arthropod bite [Unknown]
  - Urticaria papular [Unknown]
  - Leukaemia [Unknown]
  - Second primary malignancy [Unknown]
  - Fungaemia [Recovered/Resolved]
  - Herpes simplex [Unknown]
  - Femoral neck fracture [Unknown]
  - Bone lesion [Unknown]
  - Intervertebral disc degeneration [Unknown]
  - Arthritis [Unknown]
  - Osteoporosis [Unknown]
  - Osteonecrosis of jaw [Unknown]
  - Injury [Unknown]
  - Disability [Unknown]
  - Pain [Unknown]
  - Anxiety [Unknown]
  - Anhedonia [Unknown]
  - Renal failure [Unknown]
  - Anaemia [Unknown]
  - Muscle strain [Unknown]
  - Musculoskeletal stiffness [Unknown]
  - Pain in extremity [Unknown]
  - Tricuspid valve incompetence [Unknown]
  - Hepatomegaly [Unknown]
  - Atelectasis [Unknown]
  - Phlebolith [Unknown]
  - Spondylolisthesis [Unknown]
  - Osteopenia [Unknown]
  - Tachycardia [Unknown]
  - Dizziness [Unknown]
  - Seborrhoeic keratosis [Unknown]
  - Pruritus [Unknown]
  - Papule [Unknown]
  - Bone pain [Unknown]
  - Febrile neutropenia [Unknown]
  - Acute sinusitis [Unknown]
  - Hyperglycaemia [Unknown]
  - Urinary incontinence [Unknown]
  - Oedema peripheral [Unknown]
  - Alveolar lung disease [Unknown]
  - Cardiomegaly [Unknown]
  - Diarrhoea [Unknown]
  - Proctalgia [Unknown]
  - Arthralgia [Unknown]
  - Device related infection [Unknown]
  - Hyperbilirubinaemia [Unknown]
